FAERS Safety Report 5498788-4 (Version None)
Quarter: 2007Q4

REPORT INFORMATION
  Report Type: 
  Country: None (occurrence: None)
  Receive Date: 20071026
  Receipt Date: 20070718
  Transmission Date: 20080405
  Serious: No
  Sender: FDA-Public Use
  Company Number: A0664849A

PATIENT
  Age: 62 Year
  Sex: Female

DRUGS (10)
  1. ADVAIR DISKUS 100/50 [Suspect]
     Indication: ASTHMA
     Dosage: 1PUFF TWICE PER DAY
     Route: 055
     Dates: start: 20070401, end: 20070501
  2. LAMICTAL [Suspect]
     Indication: EPILEPSY
     Dosage: 150MG TWICE PER DAY
     Route: 048
  3. ATROVENT [Concomitant]
  4. PLAVIX [Concomitant]
  5. ASPIRIN [Concomitant]
  6. LAMICTAL [Concomitant]
  7. LOVASTATIN [Concomitant]
  8. VITAMIN B-12 [Concomitant]
  9. B12 COMPLEX [Concomitant]
  10. MULTI-VITAMIN [Concomitant]

REACTIONS (2)
  - RASH [None]
  - SOMNOLENCE [None]
